FAERS Safety Report 20382989 (Version 1)
Quarter: 2022Q1

REPORT INFORMATION
  Report Type: Spontaneous
  Country: US (occurrence: None)
  Receive Date: 20220126
  Receipt Date: 20220126
  Transmission Date: 20220423
  Serious: No
  Sender: FDA-Public Use
  Company Number: None

PATIENT

DRUGS (14)
  1. CLINDAMYCIN PHOSPHATE [Suspect]
     Active Substance: CLINDAMYCIN PHOSPHATE
  2. CLINDAMYCIN PHOSPHATE [Suspect]
     Active Substance: CLINDAMYCIN PHOSPHATE
  3. LEVETIRACETAM [Suspect]
     Active Substance: LEVETIRACETAM
  4. CIPROFLOXACIN [Suspect]
     Active Substance: CIPROFLOXACIN
  5. CIPROFLOXACIN [Suspect]
     Active Substance: CIPROFLOXACIN
  6. FLUCONAZOLE [Suspect]
     Active Substance: FLUCONAZOLE
  7. LINEZOLID [Suspect]
     Active Substance: LINEZOLID
  8. LEVETIRACETAM [Suspect]
     Active Substance: LEVETIRACETAM
  9. LEVETIRACETAM [Suspect]
     Active Substance: LEVETIRACETAM
  10. METRONIDAZOLE [Suspect]
     Active Substance: METRONIDAZOLE
  11. LEVOFLOXACIN [Suspect]
     Active Substance: LEVOFLOXACIN
  12. LEVOFLOXACIN [Suspect]
     Active Substance: LEVOFLOXACIN
  13. LEVOFLOXACIN [Suspect]
     Active Substance: LEVOFLOXACIN
  14. FLUCONAZOLE [Suspect]
     Active Substance: FLUCONAZOLE

REACTIONS (2)
  - Product dispensing error [None]
  - Product packaging confusion [None]
